FAERS Safety Report 5501485-X (Version None)
Quarter: 2007Q4

REPORT INFORMATION
  Report Type: 
  Country: None (occurrence: None)
  Receive Date: 20071019
  Receipt Date: 20070801
  Transmission Date: 20080405
  Serious: Yes (Other)
  Sender: FDA-Public Use
  Company Number: HQWYE76103AUG07

PATIENT
  Age: 55 Year
  Sex: Female
  Weight: 58.11 kg

DRUGS (5)
  1. ADVIL PM [Suspect]
     Indication: INSOMNIA
     Dosage: 1 CAPLET AS NEEDED, ORAL
     Route: 048
     Dates: start: 20070101
  2. ADVIL PM [Suspect]
     Indication: PAIN
     Dosage: 1 CAPLET AS NEEDED, ORAL
     Route: 048
     Dates: start: 20070101
  3. ADVIL PM [Suspect]
     Indication: INSOMNIA
     Dosage: 1 CAPLET AS NEEDED, ORAL
     Route: 048
     Dates: start: 20070101
  4. ADVIL PM [Suspect]
     Indication: PAIN
     Dosage: 1 CAPLET AS NEEDED, ORAL
     Route: 048
     Dates: start: 20070101
  5. INDERAL [Concomitant]

REACTIONS (2)
  - NIGHTMARE [None]
  - PALPITATIONS [None]
